FAERS Safety Report 15202198 (Version 1)
Quarter: 2018Q3

REPORT INFORMATION
  Report Type: Spontaneous
  Country: FR (occurrence: FR)
  Receive Date: 20180726
  Receipt Date: 20180726
  Transmission Date: 20181010
  Serious: Yes (Other)
  Sender: FDA-Public Use
  Company Number: FR-PFIZER INC-2018246373

PATIENT
  Age: 54 Year
  Sex: Female
  Weight: 62 kg

DRUGS (5)
  1. HYDROCORTISONE. [Concomitant]
     Active Substance: HYDROCORTISONE
     Indication: STEROID THERAPY
     Dosage: 20 MG, DAILY
     Route: 048
     Dates: start: 20171124
  2. XGEVA [Concomitant]
     Active Substance: DENOSUMAB
     Indication: PROPHYLAXIS
     Dosage: 120 UNK, DAILY
     Route: 058
     Dates: start: 20170928
  3. INNOHEP [Concomitant]
     Active Substance: TINZAPARIN SODIUM
     Indication: DEEP VEIN THROMBOSIS
     Dosage: 11000, DAILY
     Route: 058
     Dates: start: 20170925
  4. XALKORI [Suspect]
     Active Substance: CRIZOTINIB
     Indication: LUNG ADENOCARCINOMA
     Dosage: 500 MG, DAILY
     Route: 048
     Dates: end: 20171213
  5. LEVOTHYROX [Concomitant]
     Active Substance: LEVOTHYROXINE
     Indication: HYPOTHYROIDISM
     Dosage: 112.5, DAILY
     Route: 048

REACTIONS (2)
  - Hepatocellular injury [Recovered/Resolved]
  - Hepatic failure [Unknown]

NARRATIVE: CASE EVENT DATE: 20171005
